FAERS Safety Report 11851762 (Version 1)
Quarter: 2015Q4

REPORT INFORMATION
  Report Type: Report from Study
  Country: AU (occurrence: AU)
  Receive Date: 20151218
  Receipt Date: 20151218
  Transmission Date: 20160305
  Serious: Yes (Death, Life-Threatening, Hospitalization)
  Sender: FDA-Public Use
  Company Number: AU-JNJFOC-20151019358

PATIENT
  Age: 84 Year
  Sex: Female
  Weight: 95 kg

DRUGS (1)
  1. IBRUTINIB [Suspect]
     Active Substance: IBRUTINIB
     Indication: CHRONIC LYMPHOCYTIC LEUKAEMIA
     Route: 048
     Dates: start: 20150521, end: 20151023

REACTIONS (6)
  - Staphylococcal sepsis [Fatal]
  - Cardiac failure [Not Recovered/Not Resolved]
  - Haemolytic anaemia [Not Recovered/Not Resolved]
  - Femoral neck fracture [Fatal]
  - Haematoma [Not Recovered/Not Resolved]
  - Laceration [Not Recovered/Not Resolved]

NARRATIVE: CASE EVENT DATE: 20151020
